FAERS Safety Report 10257228 (Version 2)
Quarter: 2014Q3

REPORT INFORMATION
  Report Type: Spontaneous
  Country: US (occurrence: US)
  Receive Date: 20140625
  Receipt Date: 20140722
  Transmission Date: 20150326
  Serious: Yes (Other)
  Sender: FDA-Public Use
  Company Number: US-BAYER-2014-084399

PATIENT
  Age: 13 Year
  Sex: Male

DRUGS (11)
  1. HELIXATE FS [Suspect]
     Active Substance: ANTIHEMOPHILIC FACTOR, HUMAN RECOMBINANT
     Dosage: 2400 IU, ONCE
     Route: 042
     Dates: start: 20070806, end: 20070806
  2. HELIXATE FS [Suspect]
     Active Substance: ANTIHEMOPHILIC FACTOR, HUMAN RECOMBINANT
     Dosage: 2500 IU, ONCE
     Route: 042
     Dates: start: 20070803, end: 20070803
  3. HELIXATE FS [Suspect]
     Active Substance: ANTIHEMOPHILIC FACTOR, HUMAN RECOMBINANT
     Dosage: 1200 IU, BID X 24 HOURS
     Route: 042
     Dates: start: 20070804, end: 20070805
  4. HELIXATE FS [Suspect]
     Active Substance: ANTIHEMOPHILIC FACTOR, HUMAN RECOMBINANT
     Dosage: 2500 IU, QD X 4 DAYS
     Route: 042
     Dates: start: 20070806, end: 20070809
  5. HELIXATE FS [Suspect]
     Active Substance: ANTIHEMOPHILIC FACTOR, HUMAN RECOMBINANT
     Dosage: 2454 IU, ONCE
     Route: 042
     Dates: start: 20071126, end: 20071126
  6. HELIXATE FS [Suspect]
     Active Substance: ANTIHEMOPHILIC FACTOR, HUMAN RECOMBINANT
     Dosage: 1300 IU, QD X 4 DAYS
     Route: 042
     Dates: start: 20070810, end: 20070813
  7. HELIXATE FS [Suspect]
     Active Substance: ANTIHEMOPHILIC FACTOR, HUMAN RECOMBINANT
     Dosage: 2500 IU, ONCE
     Route: 042
     Dates: start: 20070802, end: 20070802
  8. HELIXATE FS [Suspect]
     Active Substance: ANTIHEMOPHILIC FACTOR, HUMAN RECOMBINANT
     Dosage: 2400 IU, QD
     Route: 042
     Dates: start: 20070804, end: 20070804
  9. HELIXATE FS [Suspect]
     Active Substance: ANTIHEMOPHILIC FACTOR, HUMAN RECOMBINANT
     Dosage: 1300 IU, QOD X 2 DAYS
     Route: 042
     Dates: start: 20070815, end: 20070817
  10. HELIXATE FS [Suspect]
     Active Substance: ANTIHEMOPHILIC FACTOR, HUMAN RECOMBINANT
     Dosage: 2000 IU, QOD X 3 DOSES
     Route: 042
     Dates: start: 20071128, end: 20071201
  11. HELIXATE FS [Suspect]
     Active Substance: ANTIHEMOPHILIC FACTOR, HUMAN RECOMBINANT
     Dosage: 1300 IU, QOD
     Route: 042

REACTIONS (1)
  - Haematoma [Recovered/Resolved]

NARRATIVE: CASE EVENT DATE: 20071126
